FAERS Safety Report 19216051 (Version 1)
Quarter: 2021Q2

REPORT INFORMATION
  Report Type: Spontaneous
  Country: UA (occurrence: UA)
  Receive Date: 20210505
  Receipt Date: 20210505
  Transmission Date: 20210717
  Serious: Yes (Other)
  Sender: FDA-Public Use
  Company Number: UA-SA-2021SA140438

PATIENT
  Sex: Female

DRUGS (3)
  1. CLEXANE [Suspect]
     Active Substance: ENOXAPARIN SODIUM
     Dosage: 0.4 MG
  2. AUGMENTIN [Concomitant]
     Active Substance: AMOXICILLIN\CLAVULANATE POTASSIUM
     Dosage: 04MG
  3. PROPRANOLOL [Concomitant]
     Active Substance: PROPRANOLOL HYDROCHLORIDE
     Dosage: 04MG

REACTIONS (5)
  - Hypersensitivity [Unknown]
  - Urticaria [Unknown]
  - Pruritus [Unknown]
  - Anaphylactic reaction [Unknown]
  - Hyperaemia [Unknown]
